FAERS Safety Report 12372240 (Version 1)
Quarter: 2016Q2

REPORT INFORMATION
  Report Type: Spontaneous
  Country: US (occurrence: US)
  Receive Date: 20160516
  Receipt Date: 20160516
  Transmission Date: 20160815
  Serious: Yes (Other)
  Sender: FDA-Public Use
  Company Number: US-DRREDDYS-USA/USA/16/0055227

PATIENT
  Sex: Female

DRUGS (1)
  1. QUETIAPINE FUMARATE TABLETS [Suspect]
     Active Substance: QUETIAPINE FUMARATE
     Indication: PRODUCT USED FOR UNKNOWN INDICATION
     Route: 048
     Dates: start: 20151201

REACTIONS (7)
  - Drug dispensing error [Unknown]
  - Incorrect dose administered [Unknown]
  - Depression [Unknown]
  - Delusion [Unknown]
  - Suicidal ideation [Unknown]
  - Mental disorder [Unknown]
  - Product packaging issue [Unknown]
